FAERS Safety Report 21082756 (Version 1)
Quarter: 2022Q3

REPORT INFORMATION
  Report Type: Spontaneous
  Country: US (occurrence: None)
  Receive Date: 20220714
  Receipt Date: 20220714
  Transmission Date: 20221026
  Serious: Yes (Hospitalization)
  Sender: FDA-Public Use
  Company Number: None

PATIENT
  Age: 76 Year
  Sex: Male

DRUGS (1)
  1. APIXABAN [Suspect]
     Active Substance: APIXABAN
     Indication: Atrial fibrillation
     Dosage: FREQUENCY : TWICE A DAY;?
     Route: 048
     Dates: start: 20190222, end: 20220621

REACTIONS (6)
  - Lower gastrointestinal haemorrhage [None]
  - Diverticulum [None]
  - Anaemia [None]
  - Rectal haemorrhage [None]
  - Intestinal polyp [None]
  - Haemorrhoids [None]

NARRATIVE: CASE EVENT DATE: 20220621
